FAERS Safety Report 9246953 (Version 1)
Quarter: 2013Q2

REPORT INFORMATION
  Report Type: Spontaneous
  Country: US (occurrence: US)
  Receive Date: 20130422
  Receipt Date: 20130422
  Transmission Date: 20140414
  Serious: No
  Sender: FDA-Public Use
  Company Number: US-ASTRAZENECA-2013SE21624

PATIENT
  Age: 61 Year
  Sex: Male
  Weight: 117 kg

DRUGS (6)
  1. NEXIUM [Suspect]
     Indication: GASTROOESOPHAGEAL REFLUX DISEASE
     Route: 048
     Dates: start: 2008
  2. VITAMINS [Concomitant]
     Indication: IMMUNE ENHANCEMENT THERAPY
  3. BABY ASPIRIN [Concomitant]
     Indication: PROPHYLAXIS
  4. ZYRTEC OTC [Concomitant]
     Indication: HYPERSENSITIVITY
  5. METFORMIN [Concomitant]
  6. INHALERS [Concomitant]

REACTIONS (4)
  - Hypertension [Unknown]
  - Diabetes mellitus [Unknown]
  - Hiatus hernia [Unknown]
  - Chronic obstructive pulmonary disease [Unknown]
